FAERS Safety Report 5310795-0 (Version None)
Quarter: 2007Q2

REPORT INFORMATION
  Report Type: 
  Country: None (occurrence: None)
  Receive Date: 20070428
  Receipt Date: 20070416
  Transmission Date: 20071010
  Serious: Yes (Other)
  Sender: FDA-Public Use
  Company Number: AU-PFIZER INC-2007016833

PATIENT
  Sex: Female

DRUGS (7)
  1. SUTENT [Suspect]
     Indication: RENAL CELL CARCINOMA STAGE UNSPECIFIED
     Route: 048
  2. DRUG, UNSPECIFIED [Concomitant]
  3. ATACAND [Concomitant]
  4. ZOMETA [Concomitant]
  5. DEXAMETHASONE 0.5MG TAB [Concomitant]
  6. NEXIUM [Concomitant]
  7. MORPHINE [Concomitant]

REACTIONS (2)
  - INFLAMMATION [None]
  - INTESTINAL PERFORATION [None]
